FAERS Safety Report 25371204 (Version 1)
Quarter: 2025Q2

REPORT INFORMATION
  Report Type: Spontaneous
  Country: FR (occurrence: FR)
  Receive Date: 20250529
  Receipt Date: 20250529
  Transmission Date: 20250717
  Serious: Yes (Hospitalization)
  Sender: ABBVIE
  Company Number: None

PATIENT
  Age: 81 Year
  Sex: Female
  Weight: 53 kg

DRUGS (11)
  1. RINVOQ [Suspect]
     Active Substance: UPADACITINIB
     Indication: Psoriatic arthropathy
     Dosage: STRENGTH: 15 MG
     Route: 048
     Dates: start: 20220706, end: 20230926
  2. RINVOQ [Suspect]
     Active Substance: UPADACITINIB
     Indication: Psoriatic arthropathy
     Dosage: STRENGTH: 15 MG
     Route: 048
     Dates: start: 20220409, end: 20220518
  3. NOVATREX (METHOTREXATE) [Suspect]
     Active Substance: METHOTREXATE SODIUM
     Indication: Psoriatic arthropathy
     Dosage: STRENGTH: 2.5 MG
     Route: 048
     Dates: start: 2001, end: 20220617
  4. NOVATREX (METHOTREXATE) [Suspect]
     Active Substance: METHOTREXATE SODIUM
     Indication: Psoriatic arthropathy
     Dosage: STRENGTH: 2.5 MG
     Route: 048
     Dates: start: 20220706, end: 20231116
  5. DAFALGAN [Concomitant]
     Active Substance: ACETAMINOPHEN
     Indication: Pain
     Route: 048
  6. RAMIPRIL [Concomitant]
     Active Substance: RAMIPRIL
     Indication: Hypertension
     Route: 048
  7. PREDNISONE [Suspect]
     Active Substance: PREDNISONE
     Indication: Psoriatic arthropathy
     Dosage: STRENGTH: 5 MG
     Route: 048
     Dates: start: 2016, end: 20231116
  8. METFORMIN HYDROCHLORIDE [Concomitant]
     Active Substance: METFORMIN HYDROCHLORIDE
     Indication: Type 2 diabetes mellitus
     Dosage: BASE
     Route: 048
  9. CALTRATE WITH VITAMIN D [Concomitant]
     Active Substance: CALCIUM CARBONATE\CHOLECALCIFEROL
     Indication: Vitamin supplementation
     Dosage: STRENGTH: 600 MG/400 UI, DOSE FORM: SCORED FILM-COATED TABLET
     Route: 048
  10. DAFALGAN CODEINE [Concomitant]
     Active Substance: ACETAMINOPHEN\CODEINE PHOSPHATE
     Indication: Pain
     Route: 048
  11. FOLIC ACID [Concomitant]
     Active Substance: FOLIC ACID
     Indication: Drug toxicity prophylaxis
     Route: 048

REACTIONS (3)
  - Cytomegalovirus infection [Recovered/Resolved]
  - Intervertebral discitis [Recovering/Resolving]
  - Pneumocystis jirovecii pneumonia [Recovered/Resolved]

NARRATIVE: CASE EVENT DATE: 20220518
